FAERS Safety Report 18657526 (Version 1)
Quarter: 2020Q4

REPORT INFORMATION
  Report Type: Spontaneous
  Country: US (occurrence: US)
  Receive Date: 20201223
  Receipt Date: 20201223
  Transmission Date: 20210114
  Serious: No
  Sender: FDA-Public Use
  Company Number: US-ASTRAZENECA-2020SF57842

PATIENT
  Sex: Male
  Weight: 109.9 kg

DRUGS (3)
  1. ROSUVASTATIN. [Suspect]
     Active Substance: ROSUVASTATIN
     Route: 048
  2. CLINDAMYCIN. [Suspect]
     Active Substance: CLINDAMYCIN
     Route: 065
  3. CHANTIX [Suspect]
     Active Substance: VARENICLINE TARTRATE
     Dosage: (11 0.5MG TABS AND 42 1 MG TABS)1 TABLET, ORALLY, AS DIRECTED, TAKE 0.5 MG DAILY FOR DAYS 1 TO 3 ...
     Route: 048

REACTIONS (5)
  - Arthralgia [Unknown]
  - Drug hypersensitivity [Unknown]
  - Myalgia [Unknown]
  - Muscle spasms [Unknown]
  - Lumbosacral radiculopathy [Unknown]
